FAERS Safety Report 7756351-6 (Version None)
Quarter: 2011Q3

REPORT INFORMATION
  Report Type: 
  Country: None (occurrence: None)
  Receive Date: 20110916
  Receipt Date: 20110906
  Transmission Date: 20111222
  Serious: Yes (Other)
  Sender: FDA-Public Use
  Company Number: US-BAYER-201031275NA

PATIENT
  Age: 32 Year
  Sex: Female
  Weight: 63 kg

DRUGS (7)
  1. YAZ [Suspect]
  2. YASMIN [Suspect]
  3. WELLBUTRIN [Concomitant]
     Dosage: 300 MG, UNK
     Route: 048
  4. YASMIN [Suspect]
     Indication: PREMENSTRUAL SYNDROME
     Dosage: UNK
     Dates: start: 20040101, end: 20070101
  5. YAZ [Suspect]
     Indication: PREMENSTRUAL SYNDROME
     Dosage: UNK
     Dates: start: 20040101, end: 20070101
  6. ALTACE [Concomitant]
     Dosage: 10 MG, UNK
     Route: 048
  7. ASPIRIN [Concomitant]
     Dosage: 325 MG, CONT
     Route: 048

REACTIONS (2)
  - PAIN [None]
  - TRANSIENT ISCHAEMIC ATTACK [None]
